FAERS Safety Report 4615862-2 (Version None)
Quarter: 2005Q2

REPORT INFORMATION
  Report Type: 
  Country: None (occurrence: None)
  Receive Date: 20050311
  Receipt Date: 20041103
  Transmission Date: 20051028
  Serious: No
  Sender: FDA-Public Use
  Company Number: 2004-BP-11299BP

PATIENT
  Age: 68 Year
  Sex: Female

DRUGS (13)
  1. SPIRIVA [Suspect]
     Indication: CHRONIC OBSTRUCTIVE PULMONARY DISEASE
     Dosage: 18 MCG (18 MCG, 18 MCG ONCE DAILY), IH
     Route: 055
     Dates: start: 20040525
  2. TRIMETEREENE/HCTZ [Concomitant]
  3. XANAX [Concomitant]
  4. FOLIC ACID [Concomitant]
  5. COUMADIN [Concomitant]
  6. ASPIRIN [Concomitant]
  7. LIPITOR [Concomitant]
  8. ATENOLOL [Concomitant]
  9. POTASSIUM CHLORIDE [Concomitant]
  10. ALBUTEROL [Concomitant]
  11. ALTACE [Concomitant]
  12. MAXZIDE [Concomitant]
  13. ALPRAZOLAM [Concomitant]

REACTIONS (1)
  - DYSPNOEA EXACERBATED [None]
